FAERS Safety Report 6904250-1 (Version None)
Quarter: 2010Q3

REPORT INFORMATION
  Report Type: 
  Country: None (occurrence: None)
  Receive Date: 20100804
  Receipt Date: 20090407
  Transmission Date: 20110219
  Serious: No
  Sender: FDA-Public Use
  Company Number: US-PFIZER INC-2009190969

PATIENT
  Sex: Male
  Weight: 68.027 kg

DRUGS (5)
  1. LYRICA [Suspect]
     Indication: NEURALGIA
     Dosage: 200 MG, 3X/DAY
     Dates: start: 20090301
  2. NEURONTIN [Suspect]
     Indication: NEURALGIA
     Dosage: UNK
     Dates: end: 20090301
  3. DILAUDID [Concomitant]
     Dosage: UNK
  4. OXYCONTIN [Concomitant]
     Dosage: UNK
  5. BACLOFEN [Concomitant]
     Dosage: UNK

REACTIONS (6)
  - CIRCUMSTANCE OR INFORMATION CAPABLE OF LEADING TO MEDICATION ERROR [None]
  - DRUG INEFFECTIVE [None]
  - FATIGUE [None]
  - MEMORY IMPAIRMENT [None]
  - NERVOUSNESS [None]
  - PAIN [None]
